FAERS Safety Report 16318469 (Version 1)
Quarter: 2019Q2

REPORT INFORMATION
  Report Type: Spontaneous
  Country: CH (occurrence: CH)
  Receive Date: 20190516
  Receipt Date: 20190516
  Transmission Date: 20190711
  Serious: Yes (Hospitalization)
  Sender: FDA-Public Use
  Company Number: CH-ROCHE-2318989

PATIENT
  Age: 47 Year
  Sex: Male
  Weight: 70.4 kg

DRUGS (3)
  1. BACTRIM [Concomitant]
     Active Substance: SULFAMETHOXAZOLE\TRIMETHOPRIM
     Dosage: 800/160 MG
     Route: 048
  2. RIBOMUSTIN [Suspect]
     Active Substance: BENDAMUSTINE HYDROCHLORIDE
     Indication: B-CELL LYMPHOMA
     Dosage: CYCLICAL
     Route: 041
     Dates: start: 20171228, end: 20180426
  3. GAZYVARO [Suspect]
     Active Substance: OBINUTUZUMAB
     Indication: B-CELL LYMPHOMA
     Dosage: SOMMINISTRATI IN TOTALE 5 CICLI. ; CYCLICAL
     Route: 042
     Dates: start: 20171228, end: 20180426

REACTIONS (1)
  - Myelitis [Recovered/Resolved]

NARRATIVE: CASE EVENT DATE: 201806
